FAERS Safety Report 6914416-2 (Version None)
Quarter: 2010Q3

REPORT INFORMATION
  Report Type: 
  Country: None (occurrence: None)
  Receive Date: 20100809
  Receipt Date: 20100731
  Transmission Date: 20110219
  Serious: Yes (Hospitalization)
  Sender: FDA-Public Use
  Company Number: JP-SANOFI-AVENTIS-2010SA040794

PATIENT
  Age: 43 Year
  Sex: Female

DRUGS (16)
  1. LASIX [Suspect]
     Indication: OEDEMA
     Route: 048
     Dates: start: 20070526, end: 20080301
  2. LASIX [Suspect]
     Route: 048
     Dates: start: 20080405, end: 20100607
  3. HERBAL PREPARATION [Suspect]
     Indication: PRODUCT USED FOR UNKNOWN INDICATION
     Route: 048
     Dates: end: 20100607
  4. CHLORPROMAZINE HCL [Suspect]
     Indication: PRODUCT USED FOR UNKNOWN INDICATION
     Dosage: 50 MG X1, 25 MG X1, 50 MG X1
     Route: 048
     Dates: start: 20100430, end: 20100607
  5. CHLORPROMAZINE HCL [Suspect]
     Dosage: 50 MG X1, 25 MG X1, 50 MG X1
     Route: 048
     Dates: start: 20100430, end: 20100607
  6. TRAVELMIN [Concomitant]
  7. VEGETAMIN A [Concomitant]
  8. VEGETAMIN B [Concomitant]
  9. NAUZELIN [Concomitant]
  10. BIPERIDEN HYDROCHLORIDE TAB [Concomitant]
  11. ATARAX [Concomitant]
  12. SELBEX [Concomitant]
  13. ALPRAZOLAM [Concomitant]
  14. SILECE [Concomitant]
  15. RISPERDAL [Concomitant]
  16. RISPERDAL [Concomitant]
     Indication: DELUSION

REACTIONS (2)
  - HYPOKALAEMIA [None]
  - VENTRICULAR TACHYCARDIA [None]
